FAERS Safety Report 6297798-7 (Version None)
Quarter: 2009Q3

REPORT INFORMATION
  Report Type: 
  Country: None (occurrence: None)
  Receive Date: 20090804
  Receipt Date: 20090804
  Transmission Date: 20100115
  Serious: Yes (Death, Life-Threatening, Hospitalization, Disabling, Other)
  Sender: FDA-Public Use
  Company Number: None

PATIENT
  Age: 39 Year
  Sex: Female
  Weight: 55.5 kg

DRUGS (2)
  1. TEGRETOL [Suspect]
     Indication: CONVULSION
     Dosage: 600 MG DAILY ORAL 047
     Route: 048
     Dates: start: 19770101
  2. ALESSE [Suspect]
     Indication: CONTRACEPTION
     Dosage: 20 MG ESTROGEN DAILY ORAL 047
     Route: 048
     Dates: start: 20000101, end: 20010501

REACTIONS (4)
  - ABORTION [None]
  - DRUG EXPOSURE DURING PREGNANCY [None]
  - MEDICATION ERROR [None]
  - PREGNANCY ON ORAL CONTRACEPTIVE [None]
